FAERS Safety Report 12848294 (Version 1)
Quarter: 2016Q4

REPORT INFORMATION
  Report Type: Spontaneous
  Country: US (occurrence: US)
  Receive Date: 20161014
  Receipt Date: 20161014
  Transmission Date: 20170207
  Serious: No
  Sender: FDA-Public Use
  Company Number: US-JNJFOC-20160802095

PATIENT
  Age: 76 Year
  Sex: Female
  Weight: 113.4 kg

DRUGS (3)
  1. COUMADIN [Concomitant]
     Active Substance: WARFARIN SODIUM
     Indication: PRODUCT USED FOR UNKNOWN INDICATION
     Dosage: SINCE PAST 3 MONTHS
     Route: 065
  2. TYLENOL EXTRA STRENGTH [Suspect]
     Active Substance: ACETAMINOPHEN
     Indication: ARTHRALGIA
     Dosage: 2 IN THE MORNING AND THEN 2 BEFORE BED
     Route: 048
  3. TYLENOL EXTRA STRENGTH [Suspect]
     Active Substance: ACETAMINOPHEN
     Indication: HEADACHE
     Dosage: 2 IN THE MORNING AND THEN 2 BEFORE BED
     Route: 048

REACTIONS (4)
  - Contraindicated product administered [Recovered/Resolved]
  - Somnolence [Recovered/Resolved]
  - Foreign body [Recovered/Resolved]
  - Product difficult to swallow [Unknown]
